FAERS Safety Report 15627395 (Version 3)
Quarter: 2018Q4

REPORT INFORMATION
  Report Type: Spontaneous
  Country: DE (occurrence: DE)
  Receive Date: 20181116
  Receipt Date: 20181210
  Transmission Date: 20190205
  Serious: Yes (Other)
  Sender: FDA-Public Use
  Company Number: PHHY2018DE153330

PATIENT
  Age: 57 Year
  Sex: Male

DRUGS (3)
  1. AZATHIOPRINE. [Suspect]
     Active Substance: AZATHIOPRINE
     Indication: NEUROSARCOIDOSIS
     Dosage: 100 MG, QD
     Route: 065
     Dates: start: 201203, end: 201209
  2. INFLIXIMAB [Suspect]
     Active Substance: INFLIXIMAB
     Indication: NEUROSARCOIDOSIS
     Dosage: 5 MG/KG, (BODY WEIGHT ) Q4W
     Route: 065
  3. ACETYLSALICYLIC ACID [Suspect]
     Active Substance: ASPIRIN
     Indication: NEUROSARCOIDOSIS
     Dosage: 100 MG, QD
     Route: 065
     Dates: start: 201203

REACTIONS (7)
  - Ischaemic stroke [Recovered/Resolved]
  - Pyrexia [Unknown]
  - Fatigue [Unknown]
  - Product use in unapproved indication [Unknown]
  - Cranial nerve disorder [Recovered/Resolved]
  - IIIrd nerve paralysis [Unknown]
  - Bone pain [Unknown]

NARRATIVE: CASE EVENT DATE: 201209
